FAERS Safety Report 24093246 (Version 2)
Quarter: 2024Q3

REPORT INFORMATION
  Report Type: Spontaneous
  Country: DK (occurrence: DK)
  Receive Date: 20240715
  Receipt Date: 20240801
  Transmission Date: 20241016
  Serious: Yes (Other)
  Sender: TEVA
  Company Number: DK-TEVA-VS-3219092

PATIENT
  Sex: Female

DRUGS (1)
  1. METRONIDAZOLE [Suspect]
     Active Substance: METRONIDAZOLE
     Indication: Gastrointestinal inflammation
     Dosage: DOSAGE: 3 TABLETS X 3 DAILY. DAILY. HAS BEEN IN TREATMENT WITH THE PRODUCT FOR 5 DAYS. ACTAVIS
     Route: 065

REACTIONS (9)
  - Swollen tongue [Recovering/Resolving]
  - Tongue erythema [Recovering/Resolving]
  - Dry mouth [Not Recovered/Not Resolved]
  - Oral mucosal blistering [Recovering/Resolving]
  - Glossodynia [Recovering/Resolving]
  - Paraesthesia oral [Recovering/Resolving]
  - Plicated tongue [Recovering/Resolving]
  - Oral infection [Unknown]
  - Tongue blistering [Recovered/Resolved]
